FAERS Safety Report 9817753 (Version 1)
Quarter: 2014Q1

REPORT INFORMATION
  Report Type: Spontaneous
  Country: US (occurrence: None)
  Receive Date: 20140110
  Receipt Date: 20140110
  Transmission Date: 20141002
  Serious: Yes (Other)
  Sender: FDA-Public Use
  Company Number: None

PATIENT
  Age: 45 Year
  Sex: Female

DRUGS (1)
  1. NICOTINE PATCH [Suspect]
     Indication: SMOKING CESSATION THERAPY
     Dosage: }10 YEARS AGO

REACTIONS (3)
  - Drug hypersensitivity [None]
  - Application site reaction [None]
  - Application site pruritus [None]
